FAERS Safety Report 5826769-7 (Version None)
Quarter: 2008Q3

REPORT INFORMATION
  Report Type: 
  Country: None (occurrence: None)
  Receive Date: 20080728
  Receipt Date: 20080728
  Transmission Date: 20090109
  Serious: Yes (Life-Threatening, Hospitalization)
  Sender: FDA-Public Use
  Company Number: None

PATIENT
  Age: 59 Year
  Sex: Male
  Weight: 93.44 kg

DRUGS (1)
  1. ORENCIA [Suspect]
     Indication: RHEUMATOID ARTHRITIS
     Dosage: 750MG EVERY 2 WEEKS IV DRIP
     Route: 041
     Dates: start: 20080710, end: 20080710

REACTIONS (4)
  - ACUTE RESPIRATORY FAILURE [None]
  - ANAPHYLACTIC SHOCK [None]
  - ASTHMA [None]
  - RASH [None]
